FAERS Safety Report 14626239 (Version 2)
Quarter: 2018Q2

REPORT INFORMATION
  Report Type: Spontaneous
  Country: US (occurrence: US)
  Receive Date: 20180312
  Receipt Date: 20180402
  Transmission Date: 20180711
  Serious: No
  Sender: FDA-Public Use
  Company Number: US-PFIZER INC-2018097422

PATIENT
  Age: 75 Year
  Sex: Female
  Weight: 88.44 kg

DRUGS (4)
  1. LOSARTAN. [Concomitant]
     Active Substance: LOSARTAN
     Indication: HYPERTENSION
     Dosage: 1 MG, 1X/DAY
     Route: 048
  2. LYRICA [Suspect]
     Active Substance: PREGABALIN
     Dosage: 75 MG, 2X/DAY (75MG CAPSULES BY MOUTH IN MORNING AND EVENING)
     Route: 048
     Dates: start: 20180216
  3. LYRICA [Suspect]
     Active Substance: PREGABALIN
     Dosage: 75 MG, 3X/DAY
     Route: 048
     Dates: start: 20180322
  4. LYRICA [Suspect]
     Active Substance: PREGABALIN
     Indication: HERPES ZOSTER
     Dosage: 150 MG, UNK

REACTIONS (6)
  - Swelling [Recovered/Resolved]
  - Drug effect incomplete [Recovering/Resolving]
  - Dizziness [Unknown]
  - Dry throat [Unknown]
  - Poor quality sleep [Recovered/Resolved]
  - Somnolence [Recovered/Resolved]
